FAERS Safety Report 19759910 (Version 1)
Quarter: 2021Q3

REPORT INFORMATION
  Report Type: Spontaneous
  Country: US (occurrence: US)
  Receive Date: 20210830
  Receipt Date: 20210830
  Transmission Date: 20211014
  Serious: Yes (Hospitalization, Other)
  Sender: FDA-Public Use
  Company Number: US-EPICPHARMA-US-2021EPCLIT00935

PATIENT
  Age: 49 Year
  Sex: Male

DRUGS (7)
  1. HYDROXYCHLOROQUINE [Interacting]
     Active Substance: HYDROXYCHLOROQUINE
     Indication: RASH
  2. HYDROXYCHLOROQUINE [Interacting]
     Active Substance: HYDROXYCHLOROQUINE
     Indication: SYSTEMIC LUPUS ERYTHEMATOSUS
     Route: 065
  3. BUPROPION HYDROCHLORIDE. [Suspect]
     Active Substance: BUPROPION HYDROCHLORIDE
     Indication: EX-TOBACCO USER
     Route: 065
  4. WARFARIN [Concomitant]
     Active Substance: WARFARIN
     Indication: PRODUCT USED FOR UNKNOWN INDICATION
     Route: 065
  5. TRIAMCINOLONE [Interacting]
     Active Substance: TRIAMCINOLONE
     Indication: RASH
     Route: 065
  6. DAPSONE. [Interacting]
     Active Substance: DAPSONE
     Indication: RASH
     Route: 065
  7. PREDNISONE. [Interacting]
     Active Substance: PREDNISONE
     Indication: RASH
     Route: 065

REACTIONS (2)
  - Product use in unapproved indication [Unknown]
  - Lupus-like syndrome [Recovered/Resolved]
